FAERS Safety Report 23922571 (Version 1)
Quarter: 2024Q2

REPORT INFORMATION
  Report Type: Spontaneous
  Country: FR (occurrence: FR)
  Receive Date: 20240531
  Receipt Date: 20240531
  Transmission Date: 20240716
  Serious: Yes (Other)
  Sender: FDA-Public Use
  Company Number: FR-Axellia-005196

PATIENT
  Age: 12 Year
  Sex: Female
  Weight: 42 kg

DRUGS (1)
  1. VORICONAZOLE [Suspect]
     Active Substance: VORICONAZOLE
     Indication: Trichosporon infection
     Dates: start: 201709, end: 201903

REACTIONS (2)
  - Hepatic cytolysis [Unknown]
  - Cholestasis [Unknown]
